FAERS Safety Report 14485350 (Version 1)
Quarter: 2018Q1

REPORT INFORMATION
  Report Type: Spontaneous
  Country: US (occurrence: US)
  Receive Date: 20180202
  Receipt Date: 20180202
  Transmission Date: 20180509
  Serious: No
  Sender: FDA-Public Use
  Company Number: None

PATIENT
  Age: 49 Year
  Sex: Male

DRUGS (1)
  1. SUTENT [Suspect]
     Active Substance: SUNITINIB MALATE
     Indication: RENAL CANCER
     Dosage: 37.5 MG ONCE DAILY FOR 4 WEEKS ON 2 WEEKS  ORAL
     Route: 048
     Dates: start: 20170906, end: 20180130

REACTIONS (1)
  - Malaise [None]

NARRATIVE: CASE EVENT DATE: 20180128
